FAERS Safety Report 21420915 (Version 1)
Quarter: 2022Q4

REPORT INFORMATION
  Report Type: Spontaneous
  Country: CN (occurrence: CN)
  Receive Date: 20221007
  Receipt Date: 20221007
  Transmission Date: 20230113
  Serious: Yes (Other)
  Sender: FDA-Public Use
  Company Number: CN-SUN PHARMACEUTICAL INDUSTRIES LTD-2022R1-357571

PATIENT
  Age: 68 Year
  Sex: Female

DRUGS (6)
  1. CARBOPLATIN [Suspect]
     Active Substance: CARBOPLATIN
     Indication: Chemotherapy
     Dosage: UNK (14 CYCLES)
     Route: 065
     Dates: start: 2016, end: 2018
  2. DOCETAXEL [Suspect]
     Active Substance: DOCETAXEL
     Indication: Chemotherapy
     Dosage: UNK (14 CYCLES)
     Route: 065
     Dates: start: 2016, end: 2018
  3. PEMETREXED [Suspect]
     Active Substance: PEMETREXED
     Indication: Chemotherapy
     Dosage: UNK (14 CYCLES)
     Route: 065
     Dates: start: 2016, end: 2018
  4. FLUOROURACIL [Suspect]
     Active Substance: FLUOROURACIL
     Indication: Chemotherapy
     Dosage: UNK (14 CYCLES)
     Route: 065
     Dates: start: 2016, end: 2018
  5. PACLITAXEL [Suspect]
     Active Substance: PACLITAXEL
     Indication: Chemotherapy
     Dosage: UNK (14 CYCLES)
     Route: 065
     Dates: start: 2016, end: 2018
  6. PLINABULIN [Suspect]
     Active Substance: PLINABULIN
     Indication: Chemotherapy
     Dosage: UNK (14 CYCLES)
     Route: 065
     Dates: start: 2016, end: 2018

REACTIONS (1)
  - Disease progression [Unknown]
